FAERS Safety Report 6685986-7 (Version None)
Quarter: 2010Q2

REPORT INFORMATION
  Report Type: 
  Country: None (occurrence: None)
  Receive Date: 20100419
  Receipt Date: 20100412
  Transmission Date: 20101027
  Serious: Yes (Hospitalization)
  Sender: FDA-Public Use
  Company Number: PHHY2010AU15067

PATIENT
  Sex: Female

DRUGS (2)
  1. CLOZARIL [Suspect]
     Dosage: 325 MG, UNK
     Dates: start: 20080219
  2. CLOZARIL [Suspect]
     Dosage: 400 MG
     Dates: start: 20080219

REACTIONS (4)
  - MANIA [None]
  - NEUTROPHIL COUNT INCREASED [None]
  - SCHIZOAFFECTIVE DISORDER [None]
  - WHITE BLOOD CELL COUNT INCREASED [None]
